FAERS Safety Report 5118546-X (Version None)
Quarter: 2006Q3

REPORT INFORMATION
  Report Type: 
  Country: None (occurrence: None)
  Receive Date: 20060927
  Receipt Date: 20060913
  Transmission Date: 20061208
  Serious: Yes (Hospitalization)
  Sender: FDA-Public Use
  Company Number: DE-2006-027036

PATIENT
  Age: 28 Year
  Sex: Female

DRUGS (2)
  1. BETAFERON (INTERFERON BETA -1B)  INJECTION, 250?G [Suspect]
     Dosage: SEE IMAGE
     Route: 058
     Dates: start: 20060810
  2. BETAFERON (INTERFERON BETA -1B)  INJECTION, 250?G [Suspect]
     Dosage: SEE IMAGE
     Route: 058
     Dates: start: 20060912

REACTIONS (5)
  - ABDOMINAL PAIN LOWER [None]
  - CIRCULATORY COLLAPSE [None]
  - GENITAL HAEMORRHAGE [None]
  - NAUSEA [None]
  - VOMITING [None]
